FAERS Safety Report 7938143-8 (Version None)
Quarter: 2011Q4

REPORT INFORMATION
  Report Type: 
  Country: None (occurrence: None)
  Receive Date: 20111123
  Receipt Date: 20110927
  Transmission Date: 20120403
  Serious: No
  Sender: FDA-Public Use
  Company Number: US-BRISTOL-MYERS SQUIBB COMPANY-15888258

PATIENT
  Age: 72 Year
  Sex: Male

DRUGS (3)
  1. ONGLYZA [Suspect]
     Indication: DIABETES MELLITUS
     Route: 048
     Dates: start: 20110106
  2. GLUCOPHAGE [Suspect]
  3. AMARYL [Suspect]

REACTIONS (1)
  - DRUG INEFFECTIVE [None]
